FAERS Safety Report 8114666-6 (Version None)
Quarter: 2012Q1

REPORT INFORMATION
  Report Type: 
  Country: None (occurrence: None)
  Receive Date: 20120206
  Receipt Date: 20120203
  Transmission Date: 20120608
  Serious: Yes (Hospitalization)
  Sender: FDA-Public Use
  Company Number: US-PFIZER INC-2012030795

PATIENT
  Sex: Female

DRUGS (3)
  1. LIPITOR [Suspect]
     Dosage: UNK
  2. NORVASC [Concomitant]
     Dosage: UNK
  3. NEURONTIN [Concomitant]
     Dosage: UNK

REACTIONS (1)
  - SURGERY [None]
